FAERS Safety Report 8124199-9 (Version None)
Quarter: 2012Q1

REPORT INFORMATION
  Report Type: 
  Country: None (occurrence: None)
  Receive Date: 20120209
  Receipt Date: 20120201
  Transmission Date: 20120608
  Serious: Yes (Hospitalization)
  Sender: FDA-Public Use
  Company Number: US-US-EMD SERONO, INC.-7108955

PATIENT
  Sex: Female

DRUGS (8)
  1. REBIF [Suspect]
     Indication: MULTIPLE SCLEROSIS
     Route: 058
     Dates: start: 20110509
  2. ALPRAZOLAM [Concomitant]
  3. NIFEDIPINE [Concomitant]
  4. FUROSEMIDE [Concomitant]
  5. HYDROCODONE BITARTRATE [Concomitant]
  6. TRAMADOL HCL [Concomitant]
  7. AMANTIDINE [Concomitant]
  8. PRISTIQ [Concomitant]

REACTIONS (4)
  - COLONIC POLYP [None]
  - MULTIPLE SCLEROSIS RELAPSE [None]
  - DIVERTICULUM [None]
  - HAEMORRHOIDS [None]
